FAERS Safety Report 8258576-2 (Version None)
Quarter: 2012Q2

REPORT INFORMATION
  Report Type: 
  Country: None (occurrence: None)
  Receive Date: 20120404
  Receipt Date: 20120328
  Transmission Date: 20120825
  Serious: No
  Sender: FDA-Public Use
  Company Number: US-BAYER-2012-032370

PATIENT
  Age: 81 Year
  Sex: Male
  Weight: 75 kg

DRUGS (4)
  1. FISH OIL [Concomitant]
  2. THYROID TAB [Concomitant]
  3. MULTI-VITAMINS [Concomitant]
  4. ALEVE (CAPLET) [Suspect]
     Indication: BACK PAIN
     Dosage: 1 DF, QD
     Route: 048

REACTIONS (3)
  - NAUSEA [None]
  - BLOOD PRESSURE INCREASED [None]
  - ASTHENIA [None]
